FAERS Safety Report 23598513 (Version 1)
Quarter: 2024Q1

REPORT INFORMATION
  Report Type: Spontaneous
  Country: ES (occurrence: ES)
  Receive Date: 20240306
  Receipt Date: 20240306
  Transmission Date: 20240410
  Serious: Yes (Hospitalization)
  Sender: FDA-Public Use
  Company Number: ES-GTI-000172

PATIENT
  Age: 50 Year
  Sex: Female

DRUGS (19)
  1. PREDNISONE [Suspect]
     Active Substance: PREDNISONE
     Indication: Dermatitis atopic
     Route: 065
  2. PREDNISONE [Suspect]
     Active Substance: PREDNISONE
     Indication: Sciatic nerve neuropathy
     Route: 065
  3. PREDNISONE [Suspect]
     Active Substance: PREDNISONE
     Indication: Dermatitis atopic
     Route: 065
  4. PREDNISONE [Suspect]
     Active Substance: PREDNISONE
     Indication: Sciatic nerve neuropathy
     Route: 065
  5. MEROPENEM [Concomitant]
     Active Substance: MEROPENEM
     Indication: Staphylococcal abscess
     Route: 065
  6. VANCOMYCIN [Concomitant]
     Active Substance: VANCOMYCIN
     Indication: Staphylococcal abscess
     Route: 065
  7. LINEZOLID [Concomitant]
     Active Substance: LINEZOLID
     Indication: Staphylococcal abscess
     Route: 065
  8. LINEZOLID [Concomitant]
     Active Substance: LINEZOLID
     Indication: Extradural abscess
     Route: 065
  9. LINEZOLID [Concomitant]
     Active Substance: LINEZOLID
     Indication: Spinal cord abscess
     Route: 065
  10. LINEZOLID [Concomitant]
     Active Substance: LINEZOLID
     Indication: Muscle abscess
     Route: 065
  11. DAPTOMYCIN [Concomitant]
     Active Substance: DAPTOMYCIN
     Indication: Staphylococcal abscess
     Route: 065
  12. DAPTOMYCIN [Concomitant]
     Active Substance: DAPTOMYCIN
     Indication: Extradural abscess
     Route: 065
  13. DAPTOMYCIN [Concomitant]
     Active Substance: DAPTOMYCIN
     Indication: Spinal cord abscess
     Route: 065
  14. DAPTOMYCIN [Concomitant]
     Active Substance: DAPTOMYCIN
     Indication: Muscle abscess
     Route: 065
  15. DEXKETOPROFEN [Concomitant]
     Active Substance: DEXKETOPROFEN
     Indication: Sciatic nerve neuropathy
     Route: 030
  16. CLOXACILLIN [Concomitant]
     Active Substance: CLOXACILLIN
     Indication: Staphylococcal abscess
     Route: 065
  17. CLOXACILLIN [Concomitant]
     Active Substance: CLOXACILLIN
     Indication: Extradural abscess
     Route: 065
  18. CLOXACILLIN [Concomitant]
     Active Substance: CLOXACILLIN
     Indication: Spinal cord abscess
     Route: 065
  19. CLOXACILLIN [Concomitant]
     Active Substance: CLOXACILLIN
     Indication: Muscle abscess
     Route: 065

REACTIONS (15)
  - Sciatic nerve neuropathy [Recovered/Resolved]
  - Paraparesis [Recovered/Resolved]
  - Staphylococcal abscess [Unknown]
  - Quadriplegia [Recovered/Resolved]
  - Extradural abscess [Unknown]
  - Piriformis syndrome [Recovered/Resolved]
  - Endocarditis [Unknown]
  - Cardiac failure [Unknown]
  - Quadriparesis [Recovered/Resolved]
  - Hyperreflexia [Recovered/Resolved]
  - Hypoaesthesia [Recovered/Resolved]
  - Muscle spasticity [Recovered/Resolved]
  - Loss of personal independence in daily activities [Recovered/Resolved]
  - Spinal cord abscess [Unknown]
  - Muscle abscess [Unknown]
